FAERS Safety Report 5311280-2 (Version None)
Quarter: 2007Q2

REPORT INFORMATION
  Report Type: 
  Country: None (occurrence: None)
  Receive Date: 20070430
  Receipt Date: 20070417
  Transmission Date: 20071010
  Serious: Yes (Hospitalization)
  Sender: FDA-Public Use
  Company Number: PHHO2007MX06949

PATIENT
  Age: 73 Year
  Sex: Female

DRUGS (1)
  1. VALSARTAN AND HYDROCHLOROTHIAZIDE [Suspect]
     Indication: HYPERTENSION
     Dosage: 2 X 160/25MG TABLET DAILY
     Route: 048
     Dates: start: 20040101, end: 20070416

REACTIONS (2)
  - CHEST PAIN [None]
  - HYPERTENSION [None]
